FAERS Safety Report 8177022-0 (Version None)
Quarter: 2012Q1

REPORT INFORMATION
  Report Type: 
  Country: None (occurrence: None)
  Receive Date: 20120301
  Receipt Date: 20120222
  Transmission Date: 20120608
  Serious: Yes (Hospitalization)
  Sender: FDA-Public Use
  Company Number: FR-TEVA-325211ISR

PATIENT
  Sex: Female

DRUGS (5)
  1. SYMBICORT [Concomitant]
  2. AZILECT [Suspect]
     Dosage: 1 MILLIGRAM;
     Route: 048
     Dates: start: 20111201
  3. SINGULAIR [Concomitant]
  4. FENOFIBRATE [Concomitant]
  5. TRIVASTAL [Concomitant]

REACTIONS (1)
  - EAR INFECTION [None]
